FAERS Safety Report 9032488 (Version 2)
Quarter: 2013Q1

REPORT INFORMATION
  Report Type: Spontaneous
  Country: US (occurrence: US)
  Receive Date: 20130125
  Receipt Date: 20130329
  Transmission Date: 20140127
  Serious: Yes (Hospitalization)
  Sender: FDA-Public Use
  Company Number: US-PFIZER INC-2012143770

PATIENT
  Age: 47 Year
  Sex: Male
  Weight: 136 kg

DRUGS (10)
  1. LYRICA [Suspect]
     Indication: PAIN IN EXTREMITY
     Dosage: 150 MG, 2X/DAY
  2. TOPIRAMATE [Concomitant]
     Indication: RENAL DISORDER
     Dosage: 25 MG, 2X/DAY
     Dates: start: 2012
  3. AMLODIPINE BESILATE [Concomitant]
     Indication: HYPERTENSION
     Dosage: 5 MG, DAILY
     Dates: start: 2012
  4. BENAZEPRIL HYDROCHLORIDE [Concomitant]
     Indication: HYPERTENSION
     Dosage: 20 MG, DAILY
     Dates: start: 2012
  5. ATENOLOL [Concomitant]
     Indication: HYPERTENSION
     Dosage: 300 MG, DAILY
     Dates: start: 2012
  6. CARISOPRODOL [Concomitant]
     Indication: NERVE INJURY
     Dosage: 350 MG, 2X/DAY
  7. CARISOPRODOL [Concomitant]
     Indication: MUSCLE SPASMS
  8. ALPRAZOLAM [Concomitant]
     Indication: ANXIETY
     Dosage: 0.25 MG, 3X/DAY
     Dates: start: 2012
  9. HYDROCODONE [Concomitant]
     Indication: PAIN
     Dosage: UNK, 3X/DAY
  10. ZOLPIDEM [Concomitant]
     Indication: SLEEP DISORDER
     Dosage: 5 MG, DAILY

REACTIONS (2)
  - Cerebrovascular accident [Unknown]
  - Breakthrough pain [Unknown]
